FAERS Safety Report 13977611 (Version 4)
Quarter: 2017Q4

REPORT INFORMATION
  Report Type: Spontaneous
  Country: US (occurrence: US)
  Receive Date: 20170915
  Receipt Date: 20171212
  Transmission Date: 20180321
  Serious: No
  Sender: FDA-Public Use
  Company Number: US-TAIHO ONCOLOGY INC-EU-2017-01228

PATIENT
  Sex: Male
  Weight: 101.42 kg

DRUGS (2)
  1. LONSURF [Suspect]
     Active Substance: TIPIRACIL HYDROCHLORIDE\TRIFLURIDINE
     Indication: COLON CANCER
     Dosage: CYCLE 4 STARTED ON 09NOV2017
     Route: 048
     Dates: start: 20170818, end: 2017
  2. LONSURF [Suspect]
     Active Substance: TIPIRACIL HYDROCHLORIDE\TRIFLURIDINE
     Indication: COLON CANCER
     Dosage: CYCLE 3
     Route: 048
     Dates: start: 2017

REACTIONS (13)
  - Gout [Unknown]
  - Pyrexia [Unknown]
  - Vitamin D decreased [Unknown]
  - Fatigue [Unknown]
  - Swelling [Unknown]
  - Arthralgia [Unknown]
  - Hyperhidrosis [Unknown]
  - Diarrhoea [Unknown]
  - Vomiting [Unknown]
  - Nausea [Unknown]
  - Liver disorder [Unknown]
  - Pain [Unknown]
  - Vitamin B12 decreased [Unknown]

NARRATIVE: CASE EVENT DATE: 2017
